FAERS Safety Report 6868794-3 (Version None)
Quarter: 2010Q3

REPORT INFORMATION
  Report Type: 
  Country: None (occurrence: None)
  Receive Date: 20100722
  Receipt Date: 20080616
  Transmission Date: 20110219
  Serious: No
  Sender: FDA-Public Use
  Company Number: US-PFIZER INC-2008051927

PATIENT
  Sex: Male

DRUGS (10)
  1. CHANTIX [Suspect]
     Indication: SMOKING CESSATION THERAPY
     Route: 048
     Dates: start: 20080615
  2. PRINZIDE [Concomitant]
  3. METFORMIN [Concomitant]
  4. BUSPIRONE [Concomitant]
  5. GUAIFENESIN [Concomitant]
  6. TRIGLYCERIDES [Concomitant]
  7. AMITRIPTYLINE HYDROCHLORIDE [Concomitant]
  8. TRAZODONE [Concomitant]
  9. HYDROCODONE [Concomitant]
  10. GABAPENTIN [Concomitant]

REACTIONS (2)
  - DIZZINESS [None]
  - HEADACHE [None]
